FAERS Safety Report 23038278 (Version 4)
Quarter: 2024Q1

REPORT INFORMATION
  Report Type: Spontaneous
  Country: US (occurrence: US)
  Receive Date: 20231006
  Receipt Date: 20240104
  Transmission Date: 20240410
  Serious: No
  Sender: FDA-Public Use
  Company Number: US-PFIZER INC-PV202300148329

PATIENT
  Age: 12 Year
  Sex: Female

DRUGS (2)
  1. GENOTROPIN [Suspect]
     Active Substance: SOMATROPIN
     Dosage: 0.8 MG, ALTERNATE DAY (ALTERNATE WITH 1.0 MG)
  2. GENOTROPIN [Suspect]
     Active Substance: SOMATROPIN
     Dosage: 1 MG, ALTERNATE DAY (ALTERNATE WITH 0.8 MG)

REACTIONS (4)
  - Device use error [Unknown]
  - Device breakage [Unknown]
  - Device issue [Unknown]
  - Poor quality device used [Unknown]
